FAERS Safety Report 18255438 (Version 1)
Quarter: 2020Q3

REPORT INFORMATION
  Report Type: Spontaneous
  Country: CN (occurrence: CN)
  Receive Date: 20200911
  Receipt Date: 20200911
  Transmission Date: 20201103
  Serious: Yes (Other)
  Sender: FDA-Public Use
  Company Number: CN-ROCHE-2675371

PATIENT
  Age: 38 Year
  Sex: Female

DRUGS (14)
  1. DOCETAXEL. [Concomitant]
     Active Substance: DOCETAXEL
  2. TRASTUZUMAB. [Suspect]
     Active Substance: TRASTUZUMAB
     Indication: BREAST CANCER
     Dosage: DAY1, CYCLE 1
     Route: 041
     Dates: start: 20200214
  3. PERTUZUMAB. [Suspect]
     Active Substance: PERTUZUMAB
     Dosage: DAY1, CYCLE 2
     Route: 041
     Dates: start: 20200306
  4. PERTUZUMAB. [Suspect]
     Active Substance: PERTUZUMAB
     Dosage: DAY1, CYCLE 3
     Route: 041
     Dates: start: 20200331
  5. PERTUZUMAB. [Suspect]
     Active Substance: PERTUZUMAB
     Dosage: DAY1, CYCLE 5
     Route: 041
     Dates: start: 20200514
  6. PERTUZUMAB. [Suspect]
     Active Substance: PERTUZUMAB
     Dosage: DAY1, CYCLE 6
     Route: 041
     Dates: start: 20200605
  7. TRASTUZUMAB. [Suspect]
     Active Substance: TRASTUZUMAB
     Dosage: DAY1, CYCLE 2
     Route: 041
     Dates: start: 20200306
  8. TRASTUZUMAB. [Suspect]
     Active Substance: TRASTUZUMAB
     Dosage: DAY1, CYCLE 6
     Route: 041
     Dates: start: 20200605
  9. TRASTUZUMAB. [Suspect]
     Active Substance: TRASTUZUMAB
     Dosage: DAY1, CYCLE 5
     Route: 041
     Dates: start: 20200514
  10. PERTUZUMAB. [Suspect]
     Active Substance: PERTUZUMAB
     Indication: BREAST CANCER
     Dosage: DAY1, CYCLE 1
     Route: 041
     Dates: start: 20200214
  11. PERTUZUMAB. [Suspect]
     Active Substance: PERTUZUMAB
     Dosage: DAY1, CYCLE 4
     Route: 041
     Dates: start: 20200421
  12. TRASTUZUMAB. [Suspect]
     Active Substance: TRASTUZUMAB
     Dosage: DAY1, CYCLE 3
     Route: 041
     Dates: start: 20200331
  13. TRASTUZUMAB. [Suspect]
     Active Substance: TRASTUZUMAB
     Dosage: DAY1, CYCLE 4
     Route: 041
     Dates: start: 20200421
  14. CARBOPLATIN. [Concomitant]
     Active Substance: CARBOPLATIN

REACTIONS (2)
  - Myelosuppression [Unknown]
  - Lymphadenopathy [Unknown]
